FAERS Safety Report 6677988-1 (Version None)
Quarter: 2010Q2

REPORT INFORMATION
  Report Type: 
  Country: None (occurrence: None)
  Receive Date: 20100412
  Receipt Date: 20100405
  Transmission Date: 20101027
  Serious: Yes (Hospitalization, Disabling)
  Sender: FDA-Public Use
  Company Number: US-BAXTER-2010BH007037

PATIENT
  Age: 69 Year
  Sex: Male

DRUGS (3)
  1. DIANEAL [Suspect]
     Indication: PERITONEAL DIALYSIS
     Route: 033
     Dates: start: 20081201
  2. DIANEAL [Suspect]
     Indication: PERITONEAL DIALYSIS
     Route: 033
     Dates: start: 20081201
  3. UNSPECIFIED PAIN MEDICATION [Suspect]
     Indication: CELLULITIS
     Route: 065
     Dates: start: 20100101

REACTIONS (4)
  - CELLULITIS [None]
  - CONFUSIONAL STATE [None]
  - EMBOLISM [None]
  - PAIN IN EXTREMITY [None]
